FAERS Safety Report 13252592 (Version 1)
Quarter: 2017Q1

REPORT INFORMATION
  Report Type: Report from Study
  Country: DE (occurrence: DE)
  Receive Date: 20170220
  Receipt Date: 20170220
  Transmission Date: 20170428
  Serious: Yes (Hospitalization)
  Sender: FDA-Public Use
  Company Number: DE-ELI_LILLY_AND_COMPANY-DE201702007195

PATIENT
  Age: 78 Year
  Sex: Male
  Weight: 73 kg

DRUGS (3)
  1. CETUXIMAB. [Suspect]
     Active Substance: CETUXIMAB
     Dosage: 457 MG, WEEKLY (1/W)
     Route: 042
     Dates: start: 20120220, end: 20120305
  2. CETUXIMAB. [Suspect]
     Active Substance: CETUXIMAB
     Dosage: 457 MG, WEEKLY (1/W)
     Route: 042
     Dates: start: 20120320, end: 20120403
  3. CETUXIMAB. [Suspect]
     Active Substance: CETUXIMAB
     Indication: SQUAMOUS CELL CARCINOMA OF HEAD AND NECK
     Dosage: 732 MG, UNK
     Route: 042
     Dates: start: 20120213, end: 20120213

REACTIONS (1)
  - Dysphagia [Recovered/Resolved]

NARRATIVE: CASE EVENT DATE: 20120307
